FAERS Safety Report 6751619-4 (Version None)
Quarter: 2010Q2

REPORT INFORMATION
  Report Type: 
  Country: None (occurrence: None)
  Receive Date: 20100602
  Receipt Date: 20100526
  Transmission Date: 20101027
  Serious: Yes (Hospitalization)
  Sender: FDA-Public Use
  Company Number: A0790489A

PATIENT
  Age: 68 Year
  Sex: Female
  Weight: 96.4 kg

DRUGS (1)
  1. AVANDIA [Suspect]
     Route: 048
     Dates: start: 20000531, end: 20060901

REACTIONS (10)
  - ANAEMIA [None]
  - ATELECTASIS [None]
  - BRONCHITIS [None]
  - CARDIAC FAILURE CONGESTIVE [None]
  - CARDIOVASCULAR DECONDITIONING [None]
  - CARDIOVASCULAR DISORDER [None]
  - IN-STENT CORONARY ARTERY RESTENOSIS [None]
  - PLEURAL EFFUSION [None]
  - THROMBOPHLEBITIS SUPERFICIAL [None]
  - VASCULAR PSEUDOANEURYSM [None]
